FAERS Safety Report 16031938 (Version 3)
Quarter: 2019Q1

REPORT INFORMATION
  Report Type: Spontaneous
  Country: JP (occurrence: JP)
  Receive Date: 20190304
  Receipt Date: 20190325
  Transmission Date: 20190418
  Serious: Yes (Other)
  Sender: FDA-Public Use
  Company Number: JP-PFIZER INC-2019095363

PATIENT
  Age: 72 Year
  Sex: Female
  Weight: 82 kg

DRUGS (7)
  1. BONOTEO [Suspect]
     Active Substance: MINODRONIC ACID
     Dosage: 50 MG, MONTHLY (EVERY 4 WEEKS)
     Dates: start: 201601
  2. FOLIAMIN [Suspect]
     Active Substance: FOLIC ACID
     Dosage: 1 DF, WEEKLY
     Route: 048
     Dates: start: 201511, end: 201611
  3. CELECOX [Suspect]
     Active Substance: CELECOXIB
     Dosage: 400 MG, DAILY
     Route: 048
     Dates: start: 200909
  4. RABEPRAZOLE SODIUM. [Concomitant]
     Active Substance: RABEPRAZOLE SODIUM
     Dosage: UNK
     Route: 048
  5. CIMZIA [Suspect]
     Active Substance: CERTOLIZUMAB PEGOL
     Dosage: 200 MG, CYCLIC (EVERY 2 WEEKS)
     Route: 058
     Dates: start: 20160121, end: 20161121
  6. METOLATE [Suspect]
     Active Substance: METHOTREXATE
     Dosage: 12 MG, WEEKLY
     Route: 048
     Dates: start: 201511, end: 201611
  7. DAIPHEN [Suspect]
     Active Substance: SULFAMETHOXAZOLE\TRIMETHOPRIM
     Dosage: 3 DF, THRICE WEEKLY,MON, WED, FRI
     Dates: start: 201601

REACTIONS (1)
  - Breast cancer [Recovered/Resolved]

NARRATIVE: CASE EVENT DATE: 201609
